FAERS Safety Report 7955656-3 (Version None)
Quarter: 2011Q4

REPORT INFORMATION
  Report Type: 
  Country: None (occurrence: None)
  Receive Date: 20111204
  Receipt Date: 20110901
  Transmission Date: 20120403
  Serious: No
  Sender: FDA-Public Use
  Company Number: US-ALLERGAN-1111693US

PATIENT
  Age: 36 Year
  Sex: Female

DRUGS (2)
  1. ACZONE [Suspect]
     Indication: ACNE
     Dosage: ONE APPLICATION, BID
     Route: 061
     Dates: start: 20110826, end: 20110830
  2. GLYTONE SKIN CARE [Concomitant]
     Indication: ACNE
     Dosage: UNK
     Route: 061
     Dates: start: 20110301

REACTIONS (1)
  - APPLICATION SITE DISCOLOURATION [None]
